FAERS Safety Report 16394154 (Version 1)
Quarter: 2019Q2

REPORT INFORMATION
  Report Type: Spontaneous
  Country: CN (occurrence: CN)
  Receive Date: 20190605
  Receipt Date: 20190605
  Transmission Date: 20190711
  Serious: Yes (Hospitalization)
  Sender: FDA-Public Use
  Company Number: CN-PFIZER INC-2019232294

PATIENT
  Age: 64 Year
  Sex: Female
  Weight: 59 kg

DRUGS (3)
  1. DAUNORUBICIN HYDROCHLORIDE. [Suspect]
     Active Substance: DAUNORUBICIN HYDROCHLORIDE
     Dosage: 60 MG, UNK (D1-D2)
  2. DAUNORUBICIN HYDROCHLORIDE. [Suspect]
     Active Substance: DAUNORUBICIN HYDROCHLORIDE
     Indication: NEOPLASM
     Dosage: 80 MG, 1X/DAY (D1)
     Route: 041
     Dates: start: 20190330, end: 20190401
  3. CYTOSAR [Suspect]
     Active Substance: CYTARABINE
     Indication: NEOPLASM
     Dosage: 100 MG, 2X/DAY (D1-D7)
     Route: 041
     Dates: start: 20190329, end: 20190404

REACTIONS (7)
  - Platelet count decreased [Unknown]
  - Red blood cell count decreased [Unknown]
  - Granulocyte count decreased [Recovering/Resolving]
  - Pyrexia [Unknown]
  - Infection [Unknown]
  - Haemoglobin decreased [Unknown]
  - Hepatic failure [Recovering/Resolving]

NARRATIVE: CASE EVENT DATE: 20190410
